FAERS Safety Report 4289377-8 (Version None)
Quarter: 2004Q1

REPORT INFORMATION
  Report Type: 
  Country: None (occurrence: None)
  Receive Date: 20040205
  Receipt Date: 20030826
  Transmission Date: 20041129
  Serious: Yes (Other)
  Sender: FDA-Public Use
  Company Number: 2003-05995

PATIENT
  Age: 53 Year
  Sex: Male

DRUGS (9)
  1. VIREAD [Suspect]
     Indication: HIV INFECTION
     Dosage: 300 MG QD PO
     Route: 048
     Dates: start: 20030615, end: 20030807
  2. AMPRENAVIR [Concomitant]
  3. NORVIR [Concomitant]
  4. EPIVIR [Concomitant]
  5. RESCRIPTOR [Concomitant]
  6. CLARITIN [Concomitant]
  7. XANAX [Concomitant]
  8. CARISOPRODOL [Concomitant]
  9. TRICOR [Concomitant]

REACTIONS (3)
  - FANCONI SYNDROME ACQUIRED [None]
  - NEPHRITIS INTERSTITIAL [None]
  - RASH [None]
